FAERS Safety Report 11434021 (Version 1)
Quarter: 2015Q3

REPORT INFORMATION
  Report Type: Spontaneous
  Country: JP (occurrence: JP)
  Receive Date: 20150831
  Receipt Date: 20150831
  Transmission Date: 20151125
  Serious: Yes (Other)
  Sender: FDA-Public Use
  Company Number: JP-SUN PHARMACEUTICAL INDUSTRIES LTD-2015RR-102202

PATIENT

DRUGS (2)
  1. IBUPROFEN. [Suspect]
     Active Substance: IBUPROFEN
     Indication: EOSINOPHILIC PUSTULAR FOLLICULITIS
     Dosage: 600 MG, DAILY
     Route: 048
  2. INDOMETHACIN FARNESIL [Concomitant]
     Active Substance: INDOMETHACIN FARNESIL
     Indication: EOSINOPHILIC PUSTULAR FOLLICULITIS
     Dosage: 400 MG, DAILY
     Route: 048

REACTIONS (1)
  - Condition aggravated [Recovered/Resolved]
